FAERS Safety Report 9466001 (Version 2)
Quarter: 2013Q3

REPORT INFORMATION
  Report Type: Spontaneous
  Country: US (occurrence: US)
  Receive Date: 20130820
  Receipt Date: 20130820
  Transmission Date: 20140515
  Serious: No
  Sender: FDA-Public Use
  Company Number: US-MYLANLABS-2012S1020159

PATIENT
  Age: 59 Year
  Sex: Female
  Weight: 72.58 kg

DRUGS (7)
  1. TEMAZEPAM CAPSULES [Suspect]
     Indication: INSOMNIA
     Route: 048
  2. MS CONTIN [Concomitant]
     Indication: PAIN
     Dates: start: 2006
  3. PERCOCET [Concomitant]
     Indication: PAIN
     Dosage: 10MG/325MG
     Dates: start: 2006
  4. LEXAPRO [Concomitant]
     Indication: ANXIETY
  5. IBUPROFEN [Concomitant]
     Indication: PAIN
     Dates: start: 2006
  6. CENTRUM /02217401/ [Concomitant]
  7. FLAXSEED [Concomitant]

REACTIONS (3)
  - Drug ineffective [Recovered/Resolved]
  - Insomnia [Recovered/Resolved]
  - Incorrect dose administered [Recovered/Resolved]
